FAERS Safety Report 10402482 (Version 5)
Quarter: 2015Q4

REPORT INFORMATION
  Report Type: Spontaneous
  Country: BR (occurrence: BR)
  Receive Date: 20140822
  Receipt Date: 20151104
  Transmission Date: 20160304
  Serious: Yes (Death, Hospitalization, Other)
  Sender: FDA-Public Use
  Company Number: BR-PFIZER INC-2014223868

PATIENT
  Age: 71 Year
  Sex: Female
  Weight: 65 kg

DRUGS (2)
  1. SUTENT [Suspect]
     Active Substance: SUNITINIB MALATE
     Dosage: 25 MG CYCLE (4 PER 2)
     Dates: start: 201506
  2. SUTENT [Suspect]
     Active Substance: SUNITINIB MALATE
     Indication: METASTATIC RENAL CELL CARCINOMA
     Dosage: 50 MG, CYCLIC (CYCLE: 4X2)
     Route: 048
     Dates: start: 201405

REACTIONS (10)
  - Multi-organ failure [Unknown]
  - Swelling [Unknown]
  - Feeling abnormal [Unknown]
  - Pleural effusion [Unknown]
  - Palmar-plantar erythrodysaesthesia syndrome [Not Recovered/Not Resolved]
  - Metastatic renal cell carcinoma [Fatal]
  - Swelling face [Not Recovered/Not Resolved]
  - Abdominal distension [Not Recovered/Not Resolved]
  - Disease progression [Fatal]
  - Vomiting [Unknown]

NARRATIVE: CASE EVENT DATE: 2014
